FAERS Safety Report 16941845 (Version 4)
Quarter: 2020Q3

REPORT INFORMATION
  Report Type: Other
  Country: KR (occurrence: KR)
  Receive Date: 20191021
  Receipt Date: 20200812
  Transmission Date: 20201102
  Serious: Yes (Hospitalization, Other)
  Sender: FDA-Public Use
  Company Number: KR-ROCHE-2436873

PATIENT
  Age: 62 Year
  Sex: Female
  Weight: 54.3 kg

DRUGS (12)
  1. AUGMENTIN [Concomitant]
     Active Substance: AMOXICILLIN\CLAVULANATE POTASSIUM
     Indication: REFLUX LARYNGITIS
     Route: 048
     Dates: start: 20190822
  2. ITOMED [Concomitant]
     Indication: REFLUX LARYNGITIS
     Route: 048
     Dates: start: 20190822, end: 20190828
  3. TRASTUZUMAB. [Suspect]
     Active Substance: TRASTUZUMAB
     Indication: HER2 POSITIVE BREAST CANCER
     Dosage: DRUGS ADMINSTERED ON 20/JUN/2019, 11/JUL/2019, 01/AUG/2019, 22/AUG/2019, 15/OCT/2019, 05/NOV/2019, 2
     Route: 058
     Dates: start: 20190530
  4. DEXILANT [Concomitant]
     Active Substance: DEXLANSOPRAZOLE
     Indication: REFLUX LARYNGITIS
     Route: 048
     Dates: start: 20190801
  5. PACLITAXEL. [Suspect]
     Active Substance: PACLITAXEL
     Indication: HER2 POSITIVE BREAST CANCER
     Route: 065
  6. DOCETAXEL. [Suspect]
     Active Substance: DOCETAXEL
     Indication: HER2 POSITIVE BREAST CANCER
     Route: 065
  7. LOPERAMIDE [Concomitant]
     Active Substance: LOPERAMIDE
     Indication: DIARRHOEA
     Route: 048
     Dates: start: 20190830, end: 20190901
  8. GASMOTIN [Concomitant]
     Active Substance: MOSAPRIDE CITRATE
     Indication: REFLUX LARYNGITIS
     Route: 048
     Dates: start: 20190801
  9. SMECTA [Concomitant]
     Active Substance: MONTMORILLONITE
     Indication: DIARRHOEA
     Dates: start: 20190826, end: 20190830
  10. CARBOPLATIN. [Suspect]
     Active Substance: CARBOPLATIN
     Indication: HER2 POSITIVE BREAST CANCER
     Route: 065
  11. SYNATURA [Concomitant]
     Indication: REFLUX LARYNGITIS
     Route: 048
     Dates: start: 20190801, end: 20190821
  12. CAROL?F [Concomitant]
     Indication: REFLUX LARYNGITIS
     Route: 048
     Dates: start: 20190822, end: 20190828

REACTIONS (5)
  - Cardiac dysfunction [Recovering/Resolving]
  - Pneumonia [Recovered/Resolved]
  - Diarrhoea [Recovered/Resolved]
  - Reflux laryngitis [Recovering/Resolving]
  - Arthralgia [Recovering/Resolving]

NARRATIVE: CASE EVENT DATE: 20190601
